FAERS Safety Report 21732557 (Version 1)
Quarter: 2022Q4

REPORT INFORMATION
  Report Type: Spontaneous
  Country: US (occurrence: US)
  Receive Date: 20221215
  Receipt Date: 20221215
  Transmission Date: 20230113
  Serious: Yes (Other)
  Sender: FDA-Public Use
  Company Number: US-SUN PHARMACEUTICAL INDUSTRIES LTD-2022R1-368357

PATIENT
  Age: 22 Year
  Sex: Male

DRUGS (5)
  1. CALCITRIOL [Suspect]
     Active Substance: CALCITRIOL
     Indication: Supplementation therapy
     Route: 048
  2. CALCIUM CITRATE [Suspect]
     Active Substance: CALCIUM CITRATE
     Indication: Supplementation therapy
     Dosage: UNK
     Route: 065
  3. CHOLECALCIFEROL [Suspect]
     Active Substance: CHOLECALCIFEROL
     Indication: Supplementation therapy
     Dosage: UNK
     Route: 065
  4. POTASSIUM CHLORIDE [Suspect]
     Active Substance: POTASSIUM CHLORIDE
     Indication: Supplementation therapy
     Dosage: UNK
     Route: 065
  5. MAGNESIUM CITRATE [Suspect]
     Active Substance: MAGNESIUM CITRATE
     Indication: Supplementation therapy
     Dosage: UNK
     Route: 065

REACTIONS (3)
  - Drug ineffective [Unknown]
  - Gene mutation [Unknown]
  - Hypocalcaemia [Unknown]
